FAERS Safety Report 5866548-8 (Version None)
Quarter: 2008Q3

REPORT INFORMATION
  Report Type: 
  Country: None (occurrence: None)
  Receive Date: 20080828
  Receipt Date: 20080828
  Transmission Date: 20090109
  Serious: No
  Sender: FDA-Public Use
  Company Number: None

PATIENT
  Age: 2 Month
  Sex: Male
  Weight: 5.4432 kg

DRUGS (1)
  1. TYLENOL-INFANT'S DROPS  MCNEIL [Suspect]
     Indication: INJECTION SITE PAIN
     Dosage: 0.8 ML ONCE PO
     Route: 048
     Dates: start: 20080826, end: 20080826

REACTIONS (1)
  - MEDICATION ERROR [None]
